FAERS Safety Report 7910932 (Version 2)
Quarter: 2013Q1

REPORT INFORMATION
  Report Type: Spontaneous
  Country: US (occurrence: US)
  Receive Date: 20110422
  Receipt Date: 20130109
  Transmission Date: 20140127
  Serious: Yes (Other)
  Sender: FDA-Public Use
  Company Number: US-TEVA-277092USA

PATIENT
  Age: 73 Year
  Sex: Male

DRUGS (7)
  1. AZITHROMYCIN [Suspect]
     Indication: BRONCHITIS
  2. AZITHROMYCIN [Interacting]
     Dosage: 250 MILLIGRAM DAILY;
  3. SIMVASTATIN [Interacting]
     Dosage: 80 MILLIGRAM DAILY;
  4. BUMETANIDE [Concomitant]
  5. LABETALOL [Concomitant]
  6. ALLOPURINOL [Concomitant]
  7. PREDNISONE [Concomitant]

REACTIONS (2)
  - Drug interaction [Recovered/Resolved]
  - Rhabdomyolysis [Recovered/Resolved]
